FAERS Safety Report 9115293 (Version 1)
Quarter: 2013Q1

REPORT INFORMATION
  Report Type: Spontaneous
  Country: NL (occurrence: NL)
  Receive Date: 20130225
  Receipt Date: 20130225
  Transmission Date: 20140127
  Serious: Yes (Other)
  Sender: FDA-Public Use
  Company Number: PHHY2013NL017848

PATIENT
  Age: 56 Year
  Sex: Male
  Weight: 70 kg

DRUGS (1)
  1. ZOMETA [Suspect]
     Indication: PROSTATE CANCER METASTATIC
     Dosage: 0.04 MG/ML, 100 ML FLASK
     Dates: start: 2008

REACTIONS (2)
  - Hyperparathyroidism secondary [Unknown]
  - Hypophosphataemia [Recovering/Resolving]
